FAERS Safety Report 8514359-7 (Version None)
Quarter: 2012Q3

REPORT INFORMATION
  Report Type: 
  Country: None (occurrence: None)
  Receive Date: 20120717
  Receipt Date: 20120626
  Transmission Date: 20120928
  Serious: No
  Sender: FDA-Public Use
  Company Number: US-ASTRAZENECA-2011SE73092

PATIENT
  Age: 46 Year
  Sex: Female
  Weight: 57.6 kg

DRUGS (11)
  1. NEXIUM [Suspect]
     Indication: GASTROOESOPHAGEAL REFLUX DISEASE
     Route: 048
  2. SEROQUEL [Suspect]
     Indication: STRESS
     Route: 048
  3. PRILOSEC OTC [Suspect]
     Indication: GASTROOESOPHAGEAL REFLUX DISEASE
     Route: 048
  4. SEROQUEL [Suspect]
     Indication: INSOMNIA
     Route: 048
  5. SEROQUEL [Suspect]
     Route: 048
  6. SEROQUEL [Suspect]
     Indication: ANXIETY
     Route: 048
  7. SEROQUEL [Suspect]
     Route: 048
  8. CLONOPAN [Concomitant]
  9. SEROQUEL [Suspect]
     Route: 048
  10. PRILOSEC [Suspect]
     Route: 048
  11. ACETAMINOPHEN [Concomitant]

REACTIONS (8)
  - ANXIETY [None]
  - FIBROMYALGIA [None]
  - MALAISE [None]
  - DRUG DOSE OMISSION [None]
  - OFF LABEL USE [None]
  - GASTROOESOPHAGEAL REFLUX DISEASE [None]
  - HIATUS HERNIA [None]
  - DYSPEPSIA [None]
